FAERS Safety Report 5602235-9 (Version None)
Quarter: 2008Q1

REPORT INFORMATION
  Report Type: 
  Country: None (occurrence: None)
  Receive Date: 20080125
  Receipt Date: 20080124
  Transmission Date: 20080703
  Serious: Yes (Hospitalization, Other)
  Sender: FDA-Public Use
  Company Number: PHNU2008DE00449

PATIENT
  Age: 35 Year
  Sex: Female
  Weight: 60 kg

DRUGS (2)
  1. LIORESAL [Suspect]
     Route: 048
  2. LIORESAL [Suspect]
     Dosage: UNK, ONCE/SINGLE
     Route: 048

REACTIONS (7)
  - APNOEA [None]
  - CONVULSION [None]
  - INTENTIONAL OVERDOSE [None]
  - LOSS OF CONSCIOUSNESS [None]
  - RESPIRATORY FAILURE [None]
  - SEDATION [None]
  - SUICIDE ATTEMPT [None]
